FAERS Safety Report 4616219-0 (Version None)
Quarter: 2005Q1

REPORT INFORMATION
  Report Type: 
  Country: None (occurrence: None)
  Receive Date: 20050321
  Receipt Date: 20050308
  Transmission Date: 20050727
  Serious: Yes (Hospitalization)
  Sender: FDA-Public Use
  Company Number: 2005041777

PATIENT
  Age: 90 Year
  Sex: Female
  Weight: 62.5964 kg

DRUGS (11)
  1. ROGAINE [Suspect]
     Indication: ALOPECIA
     Dosage: 1 ML TWICE DAILY, TOPICAL
     Route: 061
     Dates: start: 20050101, end: 20050222
  2. OMEPRAZOLE [Concomitant]
  3. POTASSIUM ACETATE [Concomitant]
  4. DOCUSATE SODIUM (DOCUSATE SODIUM) [Concomitant]
  5. HYDROCHLOROTHIAZIDE [Concomitant]
  6. AMLODIPINE BESYLATE [Concomitant]
  7. CLOPIDOGREL BISULFATE [Concomitant]
  8. TOLTERODINE L-TARTRATE (TOLTEFODINE L-TARTRATE) [Concomitant]
  9. ATORVASTATIN CALCIUM [Concomitant]
  10. DIGOXIN [Concomitant]
  11. ESTRADIOL [Concomitant]

REACTIONS (3)
  - CARDIAC PACEMAKER INSERTION [None]
  - CEREBROVASCULAR ACCIDENT [None]
  - HAIR DISORDER [None]
